FAERS Safety Report 4396629-X (Version None)
Quarter: 2004Q3

REPORT INFORMATION
  Report Type: 
  Country: None (occurrence: None)
  Receive Date: 20040713
  Receipt Date: 20040713
  Transmission Date: 20050211
  Serious: Yes (Other)
  Sender: FDA-Public Use
  Company Number: None

PATIENT
  Age: 38 Year
  Sex: Female
  Weight: 44.4525 kg

DRUGS (2)
  1. BOTOX [Suspect]
     Indication: EYE DISORDER
     Dosage: MIN. STANDA
     Dates: start: 20040625, end: 20040625
  2. BOTOX [Suspect]
     Indication: MUSCLE TWITCHING
     Dosage: MIN. STANDA
     Dates: start: 20040625, end: 20040625

REACTIONS (5)
  - DIZZINESS [None]
  - EYE SWELLING [None]
  - EYELID PTOSIS [None]
  - NAUSEA [None]
  - OPHTHALMOPLEGIA [None]
